FAERS Safety Report 11428787 (Version 1)
Quarter: 2015Q3

REPORT INFORMATION
  Report Type: Spontaneous
  Country: US (occurrence: US)
  Receive Date: 20150828
  Receipt Date: 20150828
  Transmission Date: 20151125
  Serious: No
  Sender: FDA-Public Use
  Company Number: US-ROCHE-1235638

PATIENT
  Age: 51 Year
  Sex: Female

DRUGS (1)
  1. PEGASYS [Suspect]
     Active Substance: PEGINTERFERON ALFA-2A
     Indication: PRODUCT USED FOR UNKNOWN INDICATION
     Route: 058
     Dates: start: 20130530

REACTIONS (4)
  - Underdose [Unknown]
  - Poor quality drug administered [Unknown]
  - Accidental exposure to product [Unknown]
  - Drug administration error [Unknown]

NARRATIVE: CASE EVENT DATE: 20130530
